FAERS Safety Report 21869895 (Version 1)
Quarter: 2023Q1

REPORT INFORMATION
  Report Type: Spontaneous
  Country: US (occurrence: US)
  Receive Date: 20230117
  Receipt Date: 20230117
  Transmission Date: 20230418
  Serious: No
  Sender: FDA-Public Use
  Company Number: US-BRISTOL-MYERS SQUIBB COMPANY-2023-007088

PATIENT
  Age: 77 Year
  Sex: Male

DRUGS (1)
  1. REVLIMID [Suspect]
     Active Substance: LENALIDOMIDE
     Indication: Plasma cell myeloma
     Dosage: FREQUENCY OF DAILY FOR 2 WEEKS ON, 1 WEEK OFF
     Route: 048

REACTIONS (5)
  - Visual impairment [Unknown]
  - Balance disorder [Unknown]
  - Pain [Unknown]
  - Asthenia [Unknown]
  - Off label use [Unknown]
